FAERS Safety Report 19913986 (Version 1)
Quarter: 2021Q4

REPORT INFORMATION
  Report Type: Spontaneous
  Country: FI (occurrence: FI)
  Receive Date: 20211004
  Receipt Date: 20211004
  Transmission Date: 20220304
  Serious: Yes (Life-Threatening, Other)
  Sender: FDA-Public Use
  Company Number: None

PATIENT
  Age: 47 Year
  Sex: Male

DRUGS (3)
  1. DYMISTA [Suspect]
     Active Substance: AZELASTINE HYDROCHLORIDE\FLUTICASONE PROPIONATE
     Indication: Hypersensitivity
     Dosage: UNK UNK, QD (4,DF,DAILY)
     Route: 045
     Dates: start: 20210517, end: 20210517
  2. FLUTICASONE PROPIONATE [Concomitant]
     Active Substance: FLUTICASONE PROPIONATE
     Dosage: UNK
  3. ALBUTEROL [Concomitant]
     Active Substance: ALBUTEROL
     Dosage: UNK

REACTIONS (7)
  - Tremor [Recovered/Resolved]
  - Dyspnoea [Recovered/Resolved]
  - Lip discolouration [Recovered/Resolved]
  - Malaise [Recovered/Resolved]
  - Disturbance in attention [Recovered/Resolved]
  - Restlessness [Recovered/Resolved]
  - Bronchospasm [Recovered/Resolved]

NARRATIVE: CASE EVENT DATE: 20210517
